APPROVED DRUG PRODUCT: RIVAROXABAN
Active Ingredient: RIVAROXABAN
Strength: 20MG
Dosage Form/Route: TABLET;ORAL
Application: A208546 | Product #004
Applicant: MSN LABORATORIES PRIVATE LTD
Approved: Oct 24, 2025 | RLD: No | RS: No | Type: DISCN